FAERS Safety Report 4772139-2 (Version None)
Quarter: 2005Q3

REPORT INFORMATION
  Report Type: 
  Country: None (occurrence: None)
  Receive Date: 20050919
  Receipt Date: 20040802
  Transmission Date: 20060218
  Serious: No
  Sender: FDA-Public Use
  Company Number: US-BRISTOL-MYERS SQUIBB COMPANY-12659405

PATIENT
  Age: 27 Year
  Sex: Female

DRUGS (1)
  1. DEFINITY [Suspect]
     Route: 040
     Dates: start: 20040729, end: 20040729

REACTIONS (7)
  - CHEST DISCOMFORT [None]
  - CHEST PAIN [None]
  - DYSPNOEA [None]
  - FLANK PAIN [None]
  - FLUSHING [None]
  - TACHYCARDIA [None]
  - TACHYPNOEA [None]
